FAERS Safety Report 8070059-1 (Version None)
Quarter: 2012Q1

REPORT INFORMATION
  Report Type: 
  Country: None (occurrence: None)
  Receive Date: 20120125
  Receipt Date: 20120123
  Transmission Date: 20120608
  Serious: No
  Sender: FDA-Public Use
  Company Number: US-TEVA-316122USA

PATIENT
  Sex: Female
  Weight: 73.548 kg

DRUGS (5)
  1. CARBAMAZEPINE [Concomitant]
  2. ACETYLSALICYLIC ACID SRT [Concomitant]
  3. SINEMET [Concomitant]
  4. ROPINIROLE HYDROCHLORIDE [Concomitant]
  5. AZILECT [Suspect]
     Indication: PARKINSON'S DISEASE
     Dosage: 1 MILLIGRAM;
     Route: 048
     Dates: start: 20120102

REACTIONS (2)
  - DIARRHOEA [None]
  - DIZZINESS POSTURAL [None]
